FAERS Safety Report 4864928-0 (Version None)
Quarter: 2005Q4

REPORT INFORMATION
  Report Type: 
  Country: None (occurrence: None)
  Receive Date: 20051201
  Receipt Date: 20050802
  Transmission Date: 20060501
  Serious: No
  Sender: FDA-Public Use
  Company Number: 2005PV000734

PATIENT
  Age: 67 Year
  Sex: Female
  Weight: 87.5442 kg

DRUGS (8)
  1. BYETTA [Suspect]
     Indication: DIABETES MELLITUS NON-INSULIN-DEPENDENT
     Dosage: SEE IMAGE
     Route: 058
     Dates: start: 20050101, end: 20050729
  2. BYETTA [Suspect]
     Indication: DIABETES MELLITUS NON-INSULIN-DEPENDENT
     Dosage: SEE IMAGE
     Route: 058
     Dates: start: 20050730
  3. KETEK [Suspect]
     Dosage: UNKNOWN
     Dates: start: 20050801
  4. GLUCOVANCE [Concomitant]
  5. PREMARIN [Concomitant]
  6. LISINOPRIL [Concomitant]
  7. LEVOXYL [Concomitant]
  8. TRICOR [Concomitant]

REACTIONS (6)
  - ARTHROPOD BITE [None]
  - BLOOD GLUCOSE INCREASED [None]
  - INJECTION SITE PAIN [None]
  - INJECTION SITE PRURITUS [None]
  - INJECTION SITE URTICARIA [None]
  - WEIGHT DECREASED [None]
